FAERS Safety Report 9263824 (Version 2)
Quarter: 2014Q1

REPORT INFORMATION
  Report Type: Spontaneous
  Country: US (occurrence: US)
  Receive Date: 20130430
  Receipt Date: 20140114
  Transmission Date: 20141002
  Serious: Yes (Hospitalization)
  Sender: FDA-Public Use
  Company Number: US-BAYER-2013-053165

PATIENT
  Age: 41 Year
  Sex: Female
  Weight: 72.34 kg

DRUGS (7)
  1. YASMIN [Suspect]
     Route: 048
  2. YAZ [Suspect]
     Route: 048
  3. OCELLA [Suspect]
  4. GIANVI [Suspect]
     Route: 048
  5. OMEPRAZOLE [Concomitant]
     Dosage: 20 MG, UNK
     Route: 048
     Dates: start: 20121018, end: 20130118
  6. CEFDINIR [Concomitant]
     Dosage: 300 MG, UNK
     Route: 048
     Dates: start: 20130118
  7. PRILOSEC [Concomitant]

REACTIONS (4)
  - Deep vein thrombosis [Recovered/Resolved]
  - Emotional distress [None]
  - Pain [None]
  - Injury [Recovered/Resolved]
